FAERS Safety Report 8612039 (Version 2)
Quarter: 2014Q1

REPORT INFORMATION
  Report Type: Spontaneous
  Country: US (occurrence: None)
  Receive Date: 20120323
  Receipt Date: 20130305
  Transmission Date: 20141002
  Serious: Yes (Hospitalization)
  Sender: FDA-Public Use
  Company Number: 163-21880-11111277

PATIENT
  Age: 60 Year
  Sex: Male

DRUGS (14)
  1. REVLIMID [Suspect]
     Indication: PLASMA CELL MYELOMA
     Route: 048
     Dates: start: 20110930, end: 20111010
  2. VITAMIN E (TOCOPHEROL) [Concomitant]
  3. KLOR-CON (POTASSIUM CHLORIDE) UNKNOWN [Concomitant]
  4. LASIX (FUROSEMIDE) [Concomitant]
  5. MIDODRINE [Concomitant]
  6. PREDNISONE [Concomitant]
  7. COMPAZINE (PROCHLORPERAZINE) [Concomitant]
  8. TEMAZEPAM [Concomitant]
  9. COLACE (DOCUSATE SODIUM) [Concomitant]
  10. LEVOTHYROXINE [Concomitant]
  11. PRILOSEC (OMEPRAZOLE) [Concomitant]
  12. REGLAN (METOCLOPRAMIDE) [Concomitant]
  13. THIAMINE [Concomitant]
  14. DEXAMETHASONE [Concomitant]

REACTIONS (2)
  - Hypotension [None]
  - Blood potassium decreased [None]
